FAERS Safety Report 4599780-4 (Version None)
Quarter: 2005Q1

REPORT INFORMATION
  Report Type: 
  Country: None (occurrence: None)
  Receive Date: 20050303
  Receipt Date: 20050216
  Transmission Date: 20050727
  Serious: Yes (Hospitalization)
  Sender: FDA-Public Use
  Company Number: 2004BI001544

PATIENT
  Age: 38 Year
  Sex: Female

DRUGS (5)
  1. AVONEX [Suspect]
     Indication: MULTIPLE SCLEROSIS
     Dosage: 30 UG;QW;IM
     Route: 030
     Dates: start: 20031101
  2. GABAPENTIN [Concomitant]
  3. BACLOFEN [Concomitant]
  4. TRAZODONE HCL [Concomitant]
  5. ZANAFLEX [Concomitant]

REACTIONS (4)
  - DRUG HYPERSENSITIVITY [None]
  - DYSTONIA [None]
  - PHARMACEUTICAL PRODUCT COMPLAINT [None]
  - TRISMUS [None]
